FAERS Safety Report 9718369 (Version 1)
Quarter: 2013Q4

REPORT INFORMATION
  Report Type: Spontaneous
  Country: US (occurrence: US)
  Receive Date: 20131125
  Receipt Date: 20131125
  Transmission Date: 20140711
  Serious: No
  Sender: FDA-Public Use
  Company Number: US-VIVUS-2013V1000295

PATIENT
  Age: 66 Year
  Sex: Female
  Weight: 90.8 kg

DRUGS (6)
  1. QSYMIA 7.5MG/46MG [Suspect]
     Indication: WEIGHT DECREASED
     Route: 048
     Dates: start: 20130318, end: 20130325
  2. QSYMIA 3.75MG/23MG [Suspect]
     Indication: WEIGHT DECREASED
     Route: 048
     Dates: start: 201302
  3. KOMBIGLYZE [Concomitant]
     Indication: DIABETES MELLITUS
     Dosage: DAILY DOSE: 1 TABLET,
     Route: 048
     Dates: start: 2011
  4. FENOFIBRATE [Concomitant]
     Indication: BLOOD CHOLESTEROL
     Dosage: DAILY DOSE: 1 TABLET,
     Route: 048
     Dates: start: 2012
  5. ATORVASTATIN [Concomitant]
     Indication: BLOOD CHOLESTEROL
     Dosage: DAILY DOSE: 1 TABLET,
     Route: 048
  6. CLENIA [Concomitant]
     Indication: ROSACEA
     Route: 061

REACTIONS (1)
  - Rash [Recovered/Resolved]
